FAERS Safety Report 10953029 (Version 3)
Quarter: 2015Q2

REPORT INFORMATION
  Report Type: Spontaneous
  Country: US (occurrence: US)
  Receive Date: 20150325
  Receipt Date: 20150422
  Transmission Date: 20150821
  Serious: Yes (Hospitalization, Other)
  Sender: FDA-Public Use
  Company Number: US-PFIZER INC-2015102644

PATIENT
  Age: 60 Year
  Sex: Female
  Weight: 66 kg

DRUGS (3)
  1. PROTONIX [Suspect]
     Active Substance: PANTOPRAZOLE SODIUM
     Indication: ULCER
     Dosage: 40 MG, 1X/DAY
     Route: 048
     Dates: start: 2010, end: 201501
  2. TOPROL XL [Concomitant]
     Active Substance: METOPROLOL SUCCINATE
     Indication: HYPERTENSION
     Dosage: 50 MG, 2X/DAY
     Route: 048
  3. LISINOPRIL. [Concomitant]
     Active Substance: LISINOPRIL
     Indication: HYPERTENSION
     Dosage: 20 MG, 1X/DAY
     Route: 048

REACTIONS (5)
  - Tibia fracture [Recovering/Resolving]
  - Upper limb fracture [Recovered/Resolved with Sequelae]
  - Hypotension [Unknown]
  - Fibula fracture [Recovering/Resolving]
  - Bone disorder [Unknown]

NARRATIVE: CASE EVENT DATE: 201401
